FAERS Safety Report 9482100 (Version 1)
Quarter: 2013Q3

REPORT INFORMATION
  Report Type: Report from Study
  Country: JP (occurrence: JP)
  Receive Date: 20130828
  Receipt Date: 20130828
  Transmission Date: 20140515
  Serious: Yes (Life-Threatening, Hospitalization, Other)
  Sender: FDA-Public Use
  Company Number: JP-GENZYME-THYM-1004060

PATIENT
  Age: 52 Year
  Sex: Male
  Weight: 71 kg

DRUGS (8)
  1. THYMOGLOBULIN [Suspect]
     Indication: BONE MARROW CONDITIONING REGIMEN
     Dosage: UNK
     Route: 065
     Dates: start: 20121030, end: 20121030
  2. FLUDARA [Suspect]
     Indication: BONE MARROW CONDITIONING REGIMEN
     Dosage: UNK
     Route: 065
     Dates: start: 20121030, end: 20121103
  3. PROGRAF [Suspect]
     Indication: PROPHYLAXIS AGAINST GRAFT VERSUS HOST DISEASE
     Dosage: UNK
     Route: 065
     Dates: start: 20121105, end: 20121225
  4. PROGRAF [Suspect]
     Dosage: UNK (CAPSULE)
     Route: 065
     Dates: start: 20121226
  5. ENDOXAN [Suspect]
     Indication: BONE MARROW CONDITIONING REGIMEN
     Dosage: UNK
     Route: 065
     Dates: start: 20121030, end: 20121102
  6. METHOTREXATE [Concomitant]
     Indication: PROPHYLAXIS AGAINST GRAFT VERSUS HOST DISEASE
     Dosage: UNK
     Route: 065
     Dates: start: 20121106, end: 20121111
  7. URSO [Concomitant]
     Indication: PROPHYLAXIS
     Dosage: UNK
     Route: 065
  8. ZOVIRAX [Concomitant]
     Indication: PROPHYLAXIS
     Dosage: UNK
     Route: 065
     Dates: start: 20121030, end: 20130305

REACTIONS (7)
  - Shock [Recovered/Resolved]
  - Pyrexia [Recovered/Resolved]
  - Pyrexia [Recovered/Resolved]
  - Renal impairment [Recovered/Resolved]
  - Acute graft versus host disease in skin [Not Recovered/Not Resolved]
  - Neutropenia [Recovered/Resolved]
  - Hypertension [Not Recovered/Not Resolved]
